FAERS Safety Report 24348105 (Version 1)
Quarter: 2024Q3

REPORT INFORMATION
  Report Type: Spontaneous
  Country: TW (occurrence: TW)
  Receive Date: 20240923
  Receipt Date: 20240923
  Transmission Date: 20241016
  Serious: Yes (Death)
  Sender: STRIDES
  Company Number: TW-STRIDES ARCOLAB LIMITED-2024SP012158

PATIENT
  Age: 50 Year
  Sex: Male

DRUGS (3)
  1. FLUCYTOSINE [Suspect]
     Active Substance: FLUCYTOSINE
     Indication: Disseminated cryptococcosis
     Dosage: UNK
     Route: 065
  2. AMPHOTERICIN B [Suspect]
     Active Substance: AMPHOTERICIN B
     Indication: Disseminated cryptococcosis
     Dosage: UNK
     Route: 065
  3. FLUCONAZOLE [Suspect]
     Active Substance: FLUCONAZOLE
     Indication: Disseminated cryptococcosis
     Dosage: UNK
     Route: 048

REACTIONS (1)
  - Drug ineffective [Fatal]
